FAERS Safety Report 10087029 (Version 1)
Quarter: 2014Q2

REPORT INFORMATION
  Report Type: Spontaneous
  Country: GB (occurrence: GB)
  Receive Date: 20140418
  Receipt Date: 20140418
  Transmission Date: 20141212
  Serious: Yes (Other)
  Sender: FDA-Public Use
  Company Number: GB-ELI_LILLY_AND_COMPANY-GB201404002280

PATIENT
  Sex: Female

DRUGS (1)
  1. CYMBALTA [Suspect]
     Indication: PRODUCT USED FOR UNKNOWN INDICATION
     Dosage: 1 DF, UNKNOWN
     Route: 065
     Dates: end: 201304

REACTIONS (4)
  - Blister [Recovered/Resolved with Sequelae]
  - Drug withdrawal syndrome [Unknown]
  - Scar [Not Recovered/Not Resolved]
  - Intentional product misuse [Unknown]
